FAERS Safety Report 4863121-5 (Version None)
Quarter: 2005Q4

REPORT INFORMATION
  Report Type: 
  Country: None (occurrence: None)
  Receive Date: 20051219
  Receipt Date: 20051212
  Transmission Date: 20060501
  Serious: Yes (Death)
  Sender: FDA-Public Use
  Company Number: 2005-12-0656

PATIENT
  Age: 49 Year
  Sex: Male
  Weight: 97 kg

DRUGS (10)
  1. PEG-INTRON [Suspect]
     Indication: HEPATITIS C
     Dosage: BLINDED QWK SUBCUTANEOUS
     Route: 058
     Dates: start: 20050708, end: 20051211
  2. REBETOL [Suspect]
     Indication: HEPATITIS C
     Dosage: 1200 MG QD ORAL
     Route: 048
     Dates: start: 20050708, end: 20051211
  3. LISINOPRIL [Concomitant]
  4. TOPROL-XL [Concomitant]
  5. ALLOPURINOL [Concomitant]
  6. NAPROXEN SODIUM [Concomitant]
  7. PHENERGAN [Concomitant]
  8. KLONOPIN [Concomitant]
  9. ALLEGRA [Concomitant]
  10. XANAX [Concomitant]

REACTIONS (2)
  - DEPRESSION [None]
  - HYPERSENSITIVITY [None]
